FAERS Safety Report 7815154-4 (Version None)
Quarter: 2011Q4

REPORT INFORMATION
  Report Type: 
  Country: None (occurrence: None)
  Receive Date: 20111014
  Receipt Date: 20111007
  Transmission Date: 20120403
  Serious: Yes (Other)
  Sender: FDA-Public Use
  Company Number: IT-AMGEN-ITASP2011052188

PATIENT
  Age: 66 Year
  Sex: Male

DRUGS (1)
  1. VECTIBIX [Suspect]
     Indication: COLON CANCER
     Dosage: 444 MG, UNK
     Route: 042
     Dates: start: 20101102

REACTIONS (5)
  - MUSCLE DISORDER [None]
  - INTESTINAL ISCHAEMIA [None]
  - HYPERTHERMIA [None]
  - INTUSSUSCEPTION [None]
  - ABDOMINAL PAIN [None]
